APPROVED DRUG PRODUCT: BUSULFAN
Active Ingredient: BUSULFAN
Strength: 6MG/ML
Dosage Form/Route: INJECTABLE;INJECTION
Application: A210148 | Product #001 | TE Code: AP
Applicant: ACCORD HEALTHCARE INC USA
Approved: Feb 22, 2019 | RLD: No | RS: No | Type: RX